FAERS Safety Report 16773411 (Version 1)
Quarter: 2019Q3

REPORT INFORMATION
  Report Type: Spontaneous
  Country: US (occurrence: US)
  Receive Date: 20190904
  Receipt Date: 20190904
  Transmission Date: 20191005
  Serious: No
  Sender: FDA-Public Use
  Company Number: US-PURDUE-USA-2019-0147357

PATIENT
  Sex: Female
  Weight: 120.18 kg

DRUGS (1)
  1. OXYCODONE/ ACETAMINOPHEN TABLETS [Suspect]
     Active Substance: ACETAMINOPHEN\OXYCODONE HYDROCHLORIDE
     Indication: PAIN
     Dosage: (10/325 MG) 1 TABLET, Q8H
     Route: 048

REACTIONS (2)
  - Pruritus [Unknown]
  - Therapeutic product effect decreased [Unknown]
